FAERS Safety Report 9579640 (Version 3)
Quarter: 2013Q4

REPORT INFORMATION
  Report Type: Spontaneous
  Country: JP (occurrence: JP)
  Receive Date: 20131002
  Receipt Date: 20131111
  Transmission Date: 20140711
  Serious: Yes (Hospitalization)
  Sender: FDA-Public Use
  Company Number: JP-AMGEN-JPNSP2013068661

PATIENT
  Age: 80 Year
  Sex: Male
  Weight: 59 kg

DRUGS (7)
  1. VECTIBIX [Suspect]
     Indication: COLON CANCER
     Dosage: 370 MG, Q2WK
     Route: 041
     Dates: start: 20130821, end: 20130821
  2. DEXART [Concomitant]
     Indication: COLON CANCER
     Dosage: 2 ML, UNK
     Route: 041
     Dates: start: 20130821, end: 20130821
  3. ALOXI [Concomitant]
     Indication: COLON CANCER
     Dosage: 0.75 MG, UNK
     Route: 041
     Dates: start: 20130821, end: 20130821
  4. LEVOFOLINATE [Concomitant]
     Indication: COLON CANCER
     Dosage: 338 MG, Q2WK
     Route: 041
     Dates: start: 20130821, end: 20130821
  5. ELPLAT [Concomitant]
     Indication: COLON CANCER
     Dosage: 144 MG, Q2WK
     Route: 041
     Dates: start: 20130821, end: 20130821
  6. 5 FU [Concomitant]
     Indication: COLON CANCER
     Dosage: 676 MG, Q2WK
     Route: 040
     Dates: start: 20130821, end: 20130821
  7. 5 FU [Concomitant]
     Dosage: 4054 MG, Q2WK
     Route: 041
     Dates: start: 20130821, end: 20130824

REACTIONS (2)
  - Interstitial lung disease [Recovering/Resolving]
  - Malaise [Unknown]
